FAERS Safety Report 5768765-4 (Version None)
Quarter: 2008Q2

REPORT INFORMATION
  Report Type: 
  Country: None (occurrence: None)
  Receive Date: 20080610
  Receipt Date: 20080602
  Transmission Date: 20081010
  Serious: Yes (Hospitalization)
  Sender: FDA-Public Use
  Company Number: 008-C5013-08021363

PATIENT
  Age: 67 Year
  Sex: Male

DRUGS (10)
  1. CC-5013 (LENALIDOMIDE) (CAPSULES) [Suspect]
     Indication: MULTIPLE MYELOMA
     Dosage: 25 MG, NOCTE, ORAL; 25 MG, DAILY, ORAL
     Route: 048
     Dates: start: 20071029, end: 20080221
  2. CC-5013 (LENALIDOMIDE) (CAPSULES) [Suspect]
     Indication: MULTIPLE MYELOMA
     Dosage: 25 MG, NOCTE, ORAL; 25 MG, DAILY, ORAL
     Route: 048
     Dates: start: 20080225
  3. DEXAMETHASONE [Suspect]
     Indication: MULTIPLE MYELOMA
     Dosage: ORAL; 40 MG, 10 IN 1 D, ORAL
     Route: 048
     Dates: start: 20071029, end: 20080221
  4. DEXAMETHASONE [Suspect]
     Indication: MULTIPLE MYELOMA
     Dosage: ORAL; 40 MG, 10 IN 1 D, ORAL
     Route: 048
     Dates: start: 20080225, end: 20080425
  5. CALCIUM CARBONATE (CALCIUM CARBONATE) [Concomitant]
  6. ASPIRIN [Concomitant]
  7. RAMIPRIL [Concomitant]
  8. BACTRIM [Concomitant]
  9. ZOPICLONE (ZOPICLONE) [Concomitant]
  10. LOPERAMIDE [Concomitant]

REACTIONS (5)
  - ANAEMIA [None]
  - CELLULITIS [None]
  - PURPURA [None]
  - RASH [None]
  - VASCULITIS [None]
